FAERS Safety Report 16197488 (Version 1)
Quarter: 2019Q2

REPORT INFORMATION
  Report Type: Spontaneous
  Country: US (occurrence: US)
  Receive Date: 20190413
  Receipt Date: 20190413
  Transmission Date: 20190711
  Serious: Yes (Other)
  Sender: FDA-Public Use
  Company Number: None

PATIENT
  Age: 84 Year
  Sex: Female
  Weight: 54 kg

DRUGS (1)
  1. RING RELIEF [Suspect]
     Active Substance: HOMEOPATHICS
     Indication: TINNITUS
     Dosage: ?          QUANTITY:3 DROP(S);?
     Route: 001
     Dates: start: 20190304, end: 20190413

REACTIONS (5)
  - Product packaging confusion [None]
  - Incorrect route of product administration [None]
  - Wrong product administered [None]
  - Product use complaint [None]
  - Eye irritation [None]

NARRATIVE: CASE EVENT DATE: 20190413
